FAERS Safety Report 19918964 (Version 3)
Quarter: 2023Q1

REPORT INFORMATION
  Report Type: Report from Study
  Country: AU (occurrence: AU)
  Receive Date: 20211005
  Receipt Date: 20230214
  Transmission Date: 20230418
  Serious: Yes (Other)
  Sender: FDA-Public Use
  Company Number: AU-NOVARTISPH-NVSC2021AU223156

PATIENT
  Sex: Female

DRUGS (4)
  1. COSENTYX [Suspect]
     Active Substance: SECUKINUMAB
     Indication: Hidradenitis
     Dosage: UNK
     Route: 058
  2. COSENTYX [Suspect]
     Active Substance: SECUKINUMAB
     Dosage: UNK
     Route: 065
     Dates: start: 2021, end: 202112
  3. ADALIMUMAB [Suspect]
     Active Substance: ADALIMUMAB
     Indication: Hidradenitis
     Dosage: UNK
     Route: 065
  4. SPIRONOLACTONE [Suspect]
     Active Substance: SPIRONOLACTONE
     Indication: Hidradenitis
     Dosage: UNK
     Route: 065

REACTIONS (3)
  - Cellulitis [Unknown]
  - Weight increased [Unknown]
  - Treatment failure [Unknown]
